FAERS Safety Report 23027023 (Version 1)
Quarter: 2023Q4

REPORT INFORMATION
  Report Type: Spontaneous
  Country: JP (occurrence: JP)
  Receive Date: 20231004
  Receipt Date: 20231004
  Transmission Date: 20240110
  Serious: Yes (Other)
  Sender: FDA-Public Use
  Company Number: JP-CLINIGEN-JP-CLGN-23-00030

PATIENT
  Age: 7 Year
  Sex: Female

DRUGS (1)
  1. DEXRAZOXANE [Suspect]
     Active Substance: DEXRAZOXANE
     Indication: Chemotherapy cardiotoxicity attenuation
     Dosage: UNK UNK
     Route: 041
     Dates: start: 20221226, end: 20221228

REACTIONS (1)
  - Off label use [Unknown]
